FAERS Safety Report 7921251-5 (Version None)
Quarter: 2011Q4

REPORT INFORMATION
  Report Type: 
  Country: None (occurrence: None)
  Receive Date: 20111117
  Receipt Date: 20101108
  Transmission Date: 20120403
  Serious: Yes (Other)
  Sender: FDA-Public Use
  Company Number: US-AMGEN-USASP2010003866

PATIENT
  Sex: Male

DRUGS (3)
  1. ENBREL [Suspect]
     Dosage: 50 MG, QWK
     Dates: start: 20060701, end: 20100301
  2. ENBREL [Suspect]
     Indication: RHEUMATOID ARTHRITIS
     Dosage: 50 MG, QWK
     Dates: start: 19981201, end: 20100301
  3. TREXALL [Concomitant]
     Dosage: 8 MG, QWK
     Dates: start: 20100301

REACTIONS (3)
  - THERAPEUTIC RESPONSE DECREASED [None]
  - MANTLE CELL LYMPHOMA [None]
  - RHEUMATOID ARTHRITIS [None]
